FAERS Safety Report 13384817 (Version 1)
Quarter: 2017Q1

REPORT INFORMATION
  Report Type: Spontaneous
  Country: US (occurrence: US)
  Receive Date: 20170329
  Receipt Date: 20170329
  Transmission Date: 20170429
  Serious: No
  Sender: FDA-Public Use
  Company Number: US-GREER LABORATORIES, INC.-1064797

PATIENT
  Age: 70 Year
  Sex: Female

DRUGS (13)
  1. POLLENS - TREES, PECAN CARYA CARYA ILLINOENSIS [Suspect]
     Active Substance: CARYA ILLINOINENSIS POLLEN
     Route: 058
  2. POLLENS - TREES, BEECH, AMERICAN FAGUS GRANDIFOLIA [Suspect]
     Active Substance: FAGUS GRANDIFOLIA POLLEN
     Route: 058
  3. GRASS MIX [Suspect]
     Active Substance: ALLERGENIC EXTRACT- GRASS
     Route: 058
  4. STANDARDIZED MITE DERMATOPHAGOIDES PTERONYSSINUS [Suspect]
     Active Substance: DERMATOPHAGOIDES PTERONYSSINUS
     Route: 058
  5. POLLENS - WEEDS AND GARDEN PLANTS, RAGWEED, MIXED AMBROSIA [Suspect]
     Active Substance: AMBROSIA ARTEMISIIFOLIA POLLEN\AMBROSIA TRIFIDA POLLEN
     Indication: MULTIPLE ALLERGIES
     Route: 058
  6. POLLENS - GRASSES, BAHIA GRASS PASPALUM NOTATUM [Suspect]
     Active Substance: PASPALUM NOTATUM POLLEN
     Route: 058
  7. STANDARDIZED CAT HAIR [Suspect]
     Active Substance: FELIS CATUS HAIR
     Route: 058
  8. ZANTAC [Concomitant]
     Active Substance: RANITIDINE HYDROCHLORIDE
     Route: 048
  9. MOLDS, RUSTS AND SMUTS, FUSARIUM SOLANI [Suspect]
     Active Substance: HAEMATONECTRIA HAEMATOCOCCA
     Route: 058
  10. ZYRTEC [Concomitant]
     Active Substance: CETIRIZINE HYDROCHLORIDE
     Route: 048
  11. POLLENS - TREES, PRIVET LIGUSTRUM VULGARE [Suspect]
     Active Substance: LIGUSTRUM VULGARE POLLEN
     Route: 058
  12. POLLENS - TREES, MULBERRY, PAPER, BROUSSONETIA PAPYRIFERA [Suspect]
     Active Substance: BROUSSONETIA PAPYRIFERA POLLEN
     Route: 058
  13. POLLENS - GRASSES, JOHNSON GRASS SORGHUM HALEPENSE [Suspect]
     Active Substance: SORGHUM HALEPENSE POLLEN
     Route: 058

REACTIONS (2)
  - Injection site erythema [Recovered/Resolved]
  - Injection site pruritus [Recovered/Resolved]

NARRATIVE: CASE EVENT DATE: 20170213
